FAERS Safety Report 7423349-7 (Version None)
Quarter: 2011Q2

REPORT INFORMATION
  Report Type: 
  Country: None (occurrence: None)
  Receive Date: 20110419
  Receipt Date: 20110407
  Transmission Date: 20111010
  Serious: Yes (Death, Hospitalization)
  Sender: FDA-Public Use
  Company Number: JP-ROCHE-770820

PATIENT
  Age: 88 Year
  Sex: Male

DRUGS (5)
  1. ELPLAT [Concomitant]
     Dosage: DOSAGE IS UNCERTAIN.
     Route: 041
  2. AVASTIN [Suspect]
     Indication: LARGE INTESTINE CARCINOMA
     Route: 041
     Dates: end: 20110217
  3. FLUOROURACIL [Concomitant]
     Dosage: INTRAVENOUS DRIP. DOSAGE IS UNCERTAIN.
     Route: 042
  4. FLUOROURACIL [Concomitant]
     Dosage: INTRAVENOUS BOLUS. DOSAGE IS UNCERTAIN.
     Route: 042
  5. CALCIUM LEVOFOLINATE [Concomitant]
     Route: 041

REACTIONS (2)
  - HYPOPHAGIA [None]
  - INTERSTITIAL LUNG DISEASE [None]
